FAERS Safety Report 16146829 (Version 1)
Quarter: 2019Q2

REPORT INFORMATION
  Report Type: Spontaneous
  Country: JP (occurrence: JP)
  Receive Date: 20190402
  Receipt Date: 20190402
  Transmission Date: 20190711
  Serious: Yes (Hospitalization)
  Sender: FDA-Public Use
  Company Number: JP-AMNEAL PHARMACEUTICALS COMPANY GMBH-2019AGH00036

PATIENT
  Age: 51 Year
  Sex: Female

DRUGS (2)
  1. METHYLPREDNISOLONE SODIUM SUCCINATE. [Suspect]
     Active Substance: METHYLPREDNISOLONE SODIUM SUCCINATE
     Dosage: 1000 MG, 1X/DAY
     Route: 042
  2. METHYLPREDNISOLONE SODIUM SUCCINATE. [Suspect]
     Active Substance: METHYLPREDNISOLONE SODIUM SUCCINATE
     Indication: NEUROMYELITIS OPTICA SPECTRUM DISORDER
     Dosage: 2000 MG, 1X/DAY
     Route: 042

REACTIONS (5)
  - Brain stem haemorrhage [Recovering/Resolving]
  - Blindness unilateral [Recovering/Resolving]
  - Hypertension [Recovering/Resolving]
  - Posterior reversible encephalopathy syndrome [Not Recovered/Not Resolved]
  - Cerebral ataxia [Not Recovered/Not Resolved]
